APPROVED DRUG PRODUCT: MICARDIS HCT
Active Ingredient: HYDROCHLOROTHIAZIDE; TELMISARTAN
Strength: 25MG;80MG
Dosage Form/Route: TABLET;ORAL
Application: N021162 | Product #003 | TE Code: AB
Applicant: BOEHRINGER INGELHEIM
Approved: Apr 19, 2004 | RLD: Yes | RS: Yes | Type: RX